FAERS Safety Report 16064010 (Version 1)
Quarter: 2019Q1

REPORT INFORMATION
  Report Type: Spontaneous
  Country: GR (occurrence: GR)
  Receive Date: 20190312
  Receipt Date: 20190312
  Transmission Date: 20190418
  Serious: Yes (Other)
  Sender: FDA-Public Use
  Company Number: PHHY2019GR053005

PATIENT
  Age: 69 Year
  Sex: Female

DRUGS (5)
  1. ZARZIO [Suspect]
     Active Substance: FILGRASTIM
     Indication: NEUTROPHIL COUNT DECREASED
  2. CITALOPRAM [Concomitant]
     Active Substance: CITALOPRAM HYDROBROMIDE
     Indication: PRODUCT USED FOR UNKNOWN INDICATION
     Dosage: UNK
     Route: 065
  3. EBIXA [Concomitant]
     Active Substance: MEMANTINE HYDROCHLORIDE
     Indication: CENTRAL NERVOUS SYSTEM LESION
     Dosage: UNK
     Route: 065
  4. ZARZIO [Suspect]
     Active Substance: FILGRASTIM
     Indication: WHITE BLOOD CELL COUNT DECREASED
     Dosage: CONCENTRATION: 48 MU/0.5 ML, UNK
     Route: 065
     Dates: start: 20190301, end: 20190303
  5. ENTACT [Concomitant]
     Active Substance: ESCITALOPRAM OXALATE
     Indication: CENTRAL NERVOUS SYSTEM LESION
     Dosage: UNK UNK, QD
     Route: 065

REACTIONS (4)
  - Pyrexia [Recovered/Resolved]
  - Confusional state [Recovered/Resolved]
  - Anterograde amnesia [Recovered/Resolved]
  - Bone pain [Recovered/Resolved]

NARRATIVE: CASE EVENT DATE: 20190301
